FAERS Safety Report 14382953 (Version 4)
Quarter: 2018Q1

REPORT INFORMATION
  Report Type: Report from Study
  Country: DE (occurrence: DE)
  Receive Date: 20180114
  Receipt Date: 20180216
  Transmission Date: 20180509
  Serious: Yes (Hospitalization)
  Sender: FDA-Public Use
  Company Number: DE-TEVA-2018-DE-844088

PATIENT
  Age: 45 Year
  Sex: Female
  Weight: 93 kg

DRUGS (4)
  1. VARGATEF [Suspect]
     Active Substance: NINTEDANIB
     Indication: LUNG ADENOCARCINOMA
     Dosage: 200 MILLIGRAM DAILY;
     Route: 048
  2. DOCETAXEL. [Suspect]
     Active Substance: DOCETAXEL
     Indication: NON-SMALL CELL LUNG CANCER
     Dosage: 120 MILLIGRAM DAILY; TOTAL DAILY DOSE: 75MG/M2 BODY SURFACE AREA (BSA)
     Route: 042
     Dates: start: 20170928
  3. DOCETAXEL. [Suspect]
     Active Substance: DOCETAXEL
     Indication: LUNG ADENOCARCINOMA
     Dosage: 120 MILLIGRAM DAILY;
     Route: 042
     Dates: start: 20171201
  4. VARGATEF [Suspect]
     Active Substance: NINTEDANIB
     Indication: NON-SMALL CELL LUNG CANCER
     Route: 048
     Dates: start: 20170929

REACTIONS (4)
  - Stomatitis [Recovered/Resolved]
  - Vomiting [Recovered/Resolved]
  - Haematemesis [Unknown]
  - Nausea [Recovered/Resolved]

NARRATIVE: CASE EVENT DATE: 20171207
